FAERS Safety Report 12899818 (Version 5)
Quarter: 2016Q4

REPORT INFORMATION
  Report Type: Spontaneous
  Country: HU (occurrence: HU)
  Receive Date: 20161101
  Receipt Date: 20161214
  Transmission Date: 20170207
  Serious: Yes (Hospitalization)
  Sender: FDA-Public Use
  Company Number: HU-PFIZER INC-2016496167

PATIENT
  Age: 77 Year
  Sex: Male

DRUGS (2)
  1. SUTENT [Suspect]
     Active Substance: SUNITINIB MALATE
     Indication: METASTATIC RENAL CELL CARCINOMA
     Dosage: 1 DF, CYCLIC (DAILY 1X1 CAPSULE IN 50 MG SUNITINIB MALATE DOSE, ACCORDING TO 4/2 SCHEMA)
     Route: 048
     Dates: start: 20160906, end: 20161009
  2. SUTENT [Suspect]
     Active Substance: SUNITINIB MALATE
     Dosage: 1DF, CYCLIC (DAILY 1X1, ACCORDING TO 4/2 SCHEMA)
     Route: 048

REACTIONS (1)
  - Cerebral circulatory failure [Recovered/Resolved]

NARRATIVE: CASE EVENT DATE: 20161022
